FAERS Safety Report 4375099-1 (Version None)
Quarter: 2004Q2

REPORT INFORMATION
  Report Type: 
  Country: None (occurrence: None)
  Receive Date: 20040604
  Receipt Date: 20040527
  Transmission Date: 20050107
  Serious: Yes (Life-Threatening)
  Sender: FDA-Public Use
  Company Number: 2004IC000159

PATIENT
  Age: 54 Year
  Sex: Male

DRUGS (2)
  1. FLUOROURACIL [Suspect]
     Indication: PANCREATIC CARCINOMA
     Dosage: 2400 MG; DAILY; INTRAVENOUS
     Route: 042
     Dates: start: 20040407, end: 20040409
  2. ELOXATIN [Concomitant]

REACTIONS (3)
  - ANGINA PECTORIS [None]
  - DYSPNOEA [None]
  - PULMONARY OEDEMA [None]
